FAERS Safety Report 6181189-3 (Version None)
Quarter: 2009Q2

REPORT INFORMATION
  Report Type: 
  Country: None (occurrence: None)
  Receive Date: 20090501
  Receipt Date: 20090318
  Transmission Date: 20091009
  Serious: No
  Sender: FDA-Public Use
  Company Number: 2009001990

PATIENT

DRUGS (1)
  1. TREANDA [Suspect]
     Dosage: INTRAVENOUS
     Route: 042

REACTIONS (1)
  - BLOOD COUNT ABNORMAL [None]
